FAERS Safety Report 11240735 (Version 1)
Quarter: 2015Q3

REPORT INFORMATION
  Report Type: Report from Study
  Country: CA (occurrence: CA)
  Receive Date: 20150706
  Receipt Date: 20150706
  Transmission Date: 20151125
  Serious: Yes (Other)
  Sender: FDA-Public Use
  Company Number: CA-BAYER-2015-368790

PATIENT
  Age: 32 Year
  Sex: Female

DRUGS (11)
  1. PANTOLOC [Concomitant]
     Active Substance: PANTOPRAZOLE SODIUM
  2. CALCIUM [CALCIUM] [Concomitant]
     Active Substance: CALCIUM
  3. EFFEXOR [Concomitant]
     Active Substance: VENLAFAXINE HYDROCHLORIDE
  4. SEROQUEL [Concomitant]
     Active Substance: QUETIAPINE FUMARATE
     Dosage: 150 MG, QD
  5. LYRICA [Concomitant]
     Active Substance: PREGABALIN
  6. AERIUS [Concomitant]
     Active Substance: DESLORATADINE
     Dosage: UNK UNK, QD
  7. BACLOFEN. [Concomitant]
     Active Substance: BACLOFEN
  8. OXYCODONE [Concomitant]
     Active Substance: OXYCODONE
     Dosage: UNK UNK, PRN
  9. TRI-CYCLEN LO [Concomitant]
     Active Substance: ETHINYL ESTRADIOL\NORGESTIMATE
  10. VITAMIN D [Concomitant]
     Active Substance: CHOLECALCIFEROL
  11. BETASERON [Suspect]
     Active Substance: INTERFERON BETA-1B
     Indication: MULTIPLE SCLEROSIS
     Dosage: 0.250 MG, UNK
     Dates: start: 20100101

REACTIONS (2)
  - Skin atrophy [Not Recovered/Not Resolved]
  - Subcutaneous abscess [Not Recovered/Not Resolved]

NARRATIVE: CASE EVENT DATE: 2015
